FAERS Safety Report 4296652-X (Version None)
Quarter: 2004Q1

REPORT INFORMATION
  Report Type: 
  Country: None (occurrence: None)
  Receive Date: 20040217
  Receipt Date: 20030814
  Transmission Date: 20041129
  Serious: Yes (Death, Hospitalization, Disabling)
  Sender: FDA-Public Use
  Company Number: ES-ROCHE-344618

PATIENT
  Age: 62 Year
  Sex: Male
  Weight: 78 kg

DRUGS (4)
  1. PEG-INTERFERON ALFA 2A (RO 25-8310) [Suspect]
     Route: 058
     Dates: start: 20030114, end: 20030814
  2. SANDIMMUNE [Suspect]
     Indication: LIVER TRANSPLANT
     Route: 048
     Dates: start: 19930722, end: 20031106
  3. NIFEDIPINO [Concomitant]
     Route: 048
     Dates: start: 19930715, end: 20031128
  4. RANITIDINA [Concomitant]
     Route: 048
     Dates: start: 20030715, end: 20031128

REACTIONS (4)
  - CYTOMEGALOVIRUS INFECTION [None]
  - HAEMORRHAGE [None]
  - HEPATIC FAILURE [None]
  - LIVER TRANSPLANT REJECTION [None]
